FAERS Safety Report 6607531-4 (Version None)
Quarter: 2010Q1

REPORT INFORMATION
  Report Type: 
  Country: None (occurrence: None)
  Receive Date: 20100301
  Receipt Date: 20100218
  Transmission Date: 20100710
  Serious: Yes (Other)
  Sender: FDA-Public Use
  Company Number: PHEH2010US02677

PATIENT
  Sex: Female
  Weight: 58.957 kg

DRUGS (3)
  1. VIVELLE-DOT [Suspect]
     Indication: ANGIOPATHY
     Dosage: 0.05 MG EVERY 2 WEEKS
     Route: 062
     Dates: start: 20100208
  2. VIVELLE-DOT [Suspect]
     Dosage: 0.75 MG
     Route: 062
  3. VIVELLE-DOT [Suspect]
     Dosage: 0.05 MG
     Route: 062

REACTIONS (2)
  - CONVULSION [None]
  - PSYCHOMOTOR HYPERACTIVITY [None]
